FAERS Safety Report 8035572-1 (Version None)
Quarter: 2012Q1

REPORT INFORMATION
  Report Type: 
  Country: None (occurrence: None)
  Receive Date: 20120111
  Receipt Date: 20120106
  Transmission Date: 20120608
  Serious: Yes (Other)
  Sender: FDA-Public Use
  Company Number: US-JNJFOC-20120102128

PATIENT
  Sex: Female
  Weight: 77.11 kg

DRUGS (1)
  1. LEVAQUIN [Suspect]
     Indication: CYSTITIS
     Route: 048
     Dates: start: 20111203, end: 20111209

REACTIONS (6)
  - FLUID RETENTION [None]
  - ARTHRALGIA [None]
  - JOINT CREPITATION [None]
  - WEIGHT INCREASED [None]
  - NERVOUSNESS [None]
  - ARTHROPATHY [None]
